FAERS Safety Report 7366986-0 (Version None)
Quarter: 2011Q1

REPORT INFORMATION
  Report Type: 
  Country: None (occurrence: None)
  Receive Date: 20110322
  Receipt Date: 20110315
  Transmission Date: 20110831
  Serious: Yes (Death)
  Sender: FDA-Public Use
  Company Number: US-PFIZER INC-US-WYE-H02029208

PATIENT
  Age: 52 Year
  Sex: Female

DRUGS (12)
  1. TIZANIDINE [Suspect]
     Dosage: UNK
     Route: 048
     Dates: start: 20060101, end: 20060101
  2. FENTANYL [Suspect]
     Dosage: UNK
     Route: 048
     Dates: start: 20060101, end: 20060101
  3. DOXEPIN HCL [Suspect]
     Dosage: UNK
     Route: 048
     Dates: start: 20060101, end: 20060101
  4. FLUOXETINE [Suspect]
     Dosage: UNK
     Route: 048
     Dates: start: 20060101, end: 20060101
  5. IBUPROFEN [Suspect]
     Dosage: UNK
     Route: 048
     Dates: start: 20060101, end: 20060101
  6. AMOXICILLIN [Suspect]
     Dosage: UNK
     Route: 048
     Dates: start: 20060101, end: 20060101
  7. PREGABALIN [Suspect]
     Dosage: UNK
     Route: 048
     Dates: start: 20060101, end: 20060101
  8. ATORVASTATIN CALCIUM [Suspect]
     Dosage: UNK
     Route: 048
     Dates: start: 20060101, end: 20060101
  9. METHOCARBAMOL [Suspect]
     Dosage: UNK
     Route: 048
     Dates: start: 20060101, end: 20060101
  10. OXYCODONE [Suspect]
     Dosage: UNK
     Route: 048
     Dates: start: 20060101, end: 20060101
  11. BUPROPION [Suspect]
     Dosage: UNK
     Route: 048
     Dates: start: 20060101, end: 20060101
  12. AMFEBUTAMONE [Suspect]
     Dosage: UNK
     Route: 048
     Dates: start: 20060101, end: 20060101

REACTIONS (1)
  - INTENTIONAL OVERDOSE [None]
